FAERS Safety Report 18757399 (Version 1)
Quarter: 2021Q1

REPORT INFORMATION
  Report Type: Spontaneous
  Country: FR (occurrence: FR)
  Receive Date: 20210119
  Receipt Date: 20210119
  Transmission Date: 20210419
  Serious: Yes (Other)
  Sender: FDA-Public Use
  Company Number: FR-TEVA-2021-FR-1869134

PATIENT
  Age: 59 Year
  Sex: Female
  Weight: 66 kg

DRUGS (1)
  1. OXALIPLATINE [Suspect]
     Active Substance: OXALIPLATIN
     Indication: NEOPLASM MALIGNANT
     Dosage: 72 MG
     Route: 042
     Dates: start: 20200422, end: 20201223

REACTIONS (3)
  - Vision blurred [Recovering/Resolving]
  - Pruritus [Recovering/Resolving]
  - Hypotension [Recovering/Resolving]

NARRATIVE: CASE EVENT DATE: 20201223
